FAERS Safety Report 5120068-7 (Version None)
Quarter: 2006Q3

REPORT INFORMATION
  Report Type: 
  Country: None (occurrence: None)
  Receive Date: 20060929
  Receipt Date: 20060914
  Transmission Date: 20061208
  Serious: Yes (Hospitalization)
  Sender: FDA-Public Use
  Company Number: E2090-00083-SPO-JP

PATIENT
  Age: 35 Year
  Sex: Female

DRUGS (2)
  1. ZONISAMIDE [Suspect]
     Indication: PAIN
     Dosage: ORAL
     Route: 048
  2. CORTICOSTEROID (CORTICOSTEROIDS) [Concomitant]

REACTIONS (7)
  - EMOTIONAL DISTRESS [None]
  - ERYTHEMA [None]
  - LYMPHADENOPATHY [None]
  - NEUTROPENIA [None]
  - PYREXIA [None]
  - RASH [None]
  - WHITE BLOOD CELL COUNT DECREASED [None]
